FAERS Safety Report 24369861 (Version 2)
Quarter: 2024Q4

REPORT INFORMATION
  Report Type: Report from Study
  Country: US (occurrence: US)
  Receive Date: 20240927
  Receipt Date: 20241007
  Transmission Date: 20250114
  Serious: Yes (Hospitalization, Other)
  Sender: EMD SERONO INC
  Company Number: US-Merck Healthcare KGaA-2024048618

PATIENT
  Sex: Male

DRUGS (1)
  1. MAVENCLAD [Suspect]
     Active Substance: CLADRIBINE
     Indication: Multiple sclerosis
     Dosage: YEAR ONE MONTH ONE THERAPY
     Route: 048
     Dates: start: 20240812

REACTIONS (16)
  - Hallucination [Unknown]
  - Gait disturbance [Unknown]
  - Malaise [Unknown]
  - Lethargy [Unknown]
  - Tongue biting [Unknown]
  - Haemoptysis [Unknown]
  - Cerebrovascular accident [Unknown]
  - Somnolence [Unknown]
  - Confusional state [Unknown]
  - Loss of consciousness [Unknown]
  - Decreased immune responsiveness [Unknown]
  - Urinary tract infection [Unknown]
  - Musculoskeletal disorder [Unknown]
  - Musculoskeletal disorder [Unknown]
  - Gait inability [Unknown]
  - Ill-defined disorder [Unknown]
